FAERS Safety Report 18029176 (Version 2)
Quarter: 2020Q4

REPORT INFORMATION
  Report Type: Other
  Country: JP (occurrence: JP)
  Receive Date: 20200716
  Receipt Date: 20201119
  Transmission Date: 20210113
  Serious: Yes (Hospitalization, Other)
  Sender: FDA-Public Use
  Company Number: JP-ROCHE-2487166

PATIENT
  Age: 16 Year
  Sex: Female
  Weight: 55 kg

DRUGS (5)
  1. ENTRECTINIB [Suspect]
     Active Substance: ENTRECTINIB
     Route: 048
     Dates: start: 20191025, end: 20191031
  2. ENTRECTINIB [Suspect]
     Active Substance: ENTRECTINIB
     Indication: BRAIN NEOPLASM
     Route: 048
     Dates: start: 20190930, end: 20191024
  3. ENTRECTINIB [Suspect]
     Active Substance: ENTRECTINIB
     Dosage: DOSE INTERVAL UNCERTAIN.THREE TIMES A WEEK.
     Route: 048
     Dates: start: 20191204, end: 20200105
  4. ENTRECTINIB [Suspect]
     Active Substance: ENTRECTINIB
     Route: 048
     Dates: start: 20191101, end: 20191117
  5. ENTRECTINIB [Suspect]
     Active Substance: ENTRECTINIB
     Dosage: DOSE INTERVAL UNCERTAIN. FIVE TIMES A WEEK.
     Route: 048
     Dates: start: 20191118, end: 20191203

REACTIONS (4)
  - Malaise [Recovering/Resolving]
  - Fatigue [Recovering/Resolving]
  - Somnolence [Not Recovered/Not Resolved]
  - Disease progression [Unknown]

NARRATIVE: CASE EVENT DATE: 20191025
